FAERS Safety Report 8127736-3 (Version None)
Quarter: 2011Q4

REPORT INFORMATION
  Report Type: 
  Country: None (occurrence: None)
  Receive Date: 20111230
  Receipt Date: 20111128
  Transmission Date: 20120403
  Serious: Yes (Other)
  Sender: FDA-Public Use
  Company Number: 311042USA

PATIENT
  Age: 15 Year
  Sex: Female

DRUGS (1)
  1. TOPIRAMATE [Suspect]
     Indication: MIGRAINE
     Dosage: 1/DAY FOR 7 DAYS, 2/DAY THEREAFTER (25 MG)
     Dates: start: 20111107, end: 20111117

REACTIONS (4)
  - INTRAOCULAR PRESSURE INCREASED [None]
  - EYE SWELLING [None]
  - VISION BLURRED [None]
  - OCULAR HYPERAEMIA [None]
